FAERS Safety Report 22979819 (Version 3)
Quarter: 2024Q1

REPORT INFORMATION
  Report Type: Spontaneous
  Country: US (occurrence: US)
  Receive Date: 20230925
  Receipt Date: 20240112
  Transmission Date: 20240410
  Serious: No
  Sender: FDA-Public Use
  Company Number: US-Calliditas-2023CAL01238

PATIENT
  Age: 45 Year
  Sex: Male
  Weight: 76 kg

DRUGS (1)
  1. TARPEYO [Suspect]
     Active Substance: BUDESONIDE
     Indication: IgA nephropathy
     Dosage: 16MG (4MG CAPSULES) ONCE DAILY
     Route: 048
     Dates: start: 20230910, end: 20231124

REACTIONS (3)
  - Weight increased [Not Recovered/Not Resolved]
  - Oedema peripheral [Unknown]
  - Drug ineffective [Unknown]
